FAERS Safety Report 25113159 (Version 1)
Quarter: 2025Q1

REPORT INFORMATION
  Report Type: Spontaneous
  Country: HR (occurrence: HR)
  Receive Date: 20250324
  Receipt Date: 20250324
  Transmission Date: 20250408
  Serious: Yes (Hospitalization, Other)
  Sender: MERCK SHARP & DOHME LLC
  Company Number: HR-009507513-2266565

PATIENT
  Age: 63 Year
  Sex: Male

DRUGS (9)
  1. PEMBROLIZUMAB [Suspect]
     Active Substance: PEMBROLIZUMAB
     Indication: Non-small cell lung cancer stage III
     Dates: start: 202311, end: 202311
  2. PEMBROLIZUMAB [Suspect]
     Active Substance: PEMBROLIZUMAB
     Indication: Non-small cell lung cancer stage III
     Dates: start: 202401, end: 202401
  3. PEMBROLIZUMAB [Suspect]
     Active Substance: PEMBROLIZUMAB
     Indication: Non-small cell lung cancer stage III
     Dates: start: 2024, end: 2024
  4. PEMBROLIZUMAB [Suspect]
     Active Substance: PEMBROLIZUMAB
     Indication: Non-small cell lung cancer stage III
     Dates: start: 202402, end: 202402
  5. PEMBROLIZUMAB [Suspect]
     Active Substance: PEMBROLIZUMAB
     Indication: Non-small cell lung cancer stage III
     Dates: start: 202406, end: 202406
  6. PEMBROLIZUMAB [Suspect]
     Active Substance: PEMBROLIZUMAB
     Indication: Non-small cell lung cancer stage III
     Dates: start: 202410, end: 202410
  7. PEMBROLIZUMAB [Suspect]
     Active Substance: PEMBROLIZUMAB
     Indication: Non-small cell lung cancer stage III
     Dates: start: 202411, end: 202411
  8. PEMBROLIZUMAB [Suspect]
     Active Substance: PEMBROLIZUMAB
     Indication: Non-small cell lung cancer stage III
     Dates: start: 20250304, end: 20250304
  9. DEXAMETHASONE [Concomitant]
     Active Substance: DEXAMETHASONE

REACTIONS (8)
  - Acute respiratory failure [Recovered/Resolved]
  - Diverticulitis [Unknown]
  - COVID-19 [Recovered/Resolved]
  - Incarcerated hernia [Recovered/Resolved]
  - Peripheral artery stenosis [Unknown]
  - Peripheral artery occlusion [Unknown]
  - Diverticulum intestinal [Unknown]
  - Colitis ulcerative [Unknown]

NARRATIVE: CASE EVENT DATE: 20230101
